FAERS Safety Report 8615372-1 (Version None)
Quarter: 2012Q3

REPORT INFORMATION
  Report Type: 
  Country: None (occurrence: None)
  Receive Date: 20120815
  Receipt Date: 20120815
  Transmission Date: 20120928
  Serious: Yes (Hospitalization)
  Sender: FDA-Public Use
  Company Number: None

PATIENT
  Age: 9 Year
  Sex: Female
  Weight: 55.3388 kg

DRUGS (7)
  1. ASPIRIN [Concomitant]
  2. ULTRAM [Concomitant]
  3. NEXIUM [Concomitant]
  4. NOVOLOG [Concomitant]
  5. SLIDING SCALE [Concomitant]
  6. HEPARIN [Concomitant]
  7. ALTEPLASE [Suspect]
     Indication: ISCHAEMIC STROKE
     Dosage: 5.56MG ONCE IV
     Route: 042

REACTIONS (1)
  - MOUTH HAEMORRHAGE [None]
